FAERS Safety Report 8578302-7 (Version None)
Quarter: 2012Q3

REPORT INFORMATION
  Report Type: 
  Country: None (occurrence: None)
  Receive Date: 20120808
  Receipt Date: 20120730
  Transmission Date: 20120928
  Serious: Yes (Hospitalization)
  Sender: FDA-Public Use
  Company Number: US-BAYER-2012-018974

PATIENT
  Age: 26 Year
  Sex: Female
  Weight: 104.31 kg

DRUGS (13)
  1. CELEXA [Concomitant]
     Dosage: 20 MG, UNK
     Route: 048
     Dates: start: 20100212
  2. AMBIEN [Concomitant]
  3. YAZ [Suspect]
     Indication: PREMENSTRUAL SYNDROME
     Dosage: UNK
     Dates: start: 20090501, end: 20100201
  4. YAZ [Suspect]
     Indication: ACNE
  5. FEXOFENADINE [Concomitant]
     Dosage: 180 MG, UNK
     Route: 048
     Dates: start: 20091118, end: 20100130
  6. PREDNISONE TAB [Concomitant]
     Dosage: 20 MG, UNK
     Route: 048
     Dates: start: 20100130
  7. ZOLPIDEM [Concomitant]
     Dosage: 10 MG, UNK
     Route: 048
     Dates: start: 20100208
  8. ALLEGRA [Concomitant]
     Indication: URTICARIA
     Dosage: 100 MG, UNK
     Route: 048
     Dates: start: 20060101, end: 20110101
  9. ALLEGRA [Concomitant]
     Dosage: 10 MG, UNK
     Route: 048
     Dates: start: 20100212
  10. HYDROCODONE BITARTRATE [Concomitant]
  11. NICOTINE [Concomitant]
  12. FAMOTIDINE [Concomitant]
     Dosage: 20 MG, UNK
     Route: 048
     Dates: start: 20100130
  13. XANAX [Concomitant]

REACTIONS (12)
  - LOSS OF CONSCIOUSNESS [None]
  - CIRCULATORY COLLAPSE [None]
  - DYSPNOEA [None]
  - FEAR [None]
  - PULMONARY EMBOLISM [None]
  - DEEP VEIN THROMBOSIS [None]
  - PAIN IN EXTREMITY [None]
  - ANHEDONIA [None]
  - PSYCHOLOGICAL TRAUMA [None]
  - ARTHRALGIA [None]
  - ANXIETY [None]
  - DEPRESSION [None]
